FAERS Safety Report 24180395 (Version 1)
Quarter: 2024Q3

REPORT INFORMATION
  Report Type: Spontaneous
  Country: CO (occurrence: CO)
  Receive Date: 20240806
  Receipt Date: 20240806
  Transmission Date: 20241017
  Serious: Yes (Hospitalization, Other)
  Sender: GLAXOSMITHKLINE
  Company Number: CO-GLAXOSMITHKLINE-CO2024AMR008217

PATIENT

DRUGS (1)
  1. NUCALA [Suspect]
     Active Substance: MEPOLIZUMAB
     Indication: Asthma
     Dosage: 100 MG, Q4W (INJECTION)
     Dates: start: 20230927

REACTIONS (9)
  - Procedural complication [Unknown]
  - Sleeve gastrectomy [Unknown]
  - Influenza [Unknown]
  - Pyrexia [Not Recovered/Not Resolved]
  - Urticaria [Unknown]
  - Hypersensitivity [Not Recovered/Not Resolved]
  - Postoperative wound infection [Unknown]
  - Rash pruritic [Not Recovered/Not Resolved]
  - Rash [Not Recovered/Not Resolved]

NARRATIVE: CASE EVENT DATE: 20240101
